FAERS Safety Report 16736922 (Version 3)
Quarter: 2019Q4

REPORT INFORMATION
  Report Type: Report from Study
  Country: US (occurrence: US)
  Receive Date: 20190823
  Receipt Date: 20191204
  Transmission Date: 20200122
  Serious: Yes (Death, Hospitalization, Other)
  Sender: FDA-Public Use
  Company Number: PHEH2019US034701

PATIENT
  Sex: Female
  Weight: 80.73 kg

DRUGS (5)
  1. TREPROSTINIL. [Suspect]
     Active Substance: TREPROSTINIL
     Indication: PULMONARY ARTERIAL HYPERTENSION
     Dosage: 97NG/KG/MIN, CONTINUOUSLY
     Route: 042
     Dates: start: 20190430
  2. TREPROSTINIL. [Suspect]
     Active Substance: TREPROSTINIL
     Dosage: 97NG/KG/MIN, CONTINUOUSLY
     Route: 042
     Dates: start: 20190430
  3. OPSUMIT [Concomitant]
     Active Substance: MACITENTAN
     Indication: PULMONARY ARTERIAL HYPERTENSION
     Route: 065
  4. ADCIRCA [Concomitant]
     Active Substance: TADALAFIL
     Indication: PULMONARY ARTERIAL HYPERTENSION
     Route: 065
  5. TADALAFIL. [Concomitant]
     Active Substance: TADALAFIL
     Indication: PULMONARY ARTERIAL HYPERTENSION
     Route: 065

REACTIONS (7)
  - Post procedural complication [Unknown]
  - Hypotension [Unknown]
  - Neck pain [Unknown]
  - Cardiac failure congestive [Fatal]
  - Fluid overload [Unknown]
  - Fluid retention [Unknown]
  - Back pain [Unknown]
